FAERS Safety Report 15015614 (Version 1)
Quarter: 2018Q2

REPORT INFORMATION
  Report Type: Spontaneous
  Country: NL (occurrence: NL)
  Receive Date: 20180615
  Receipt Date: 20180615
  Transmission Date: 20180711
  Serious: Yes (Other)
  Sender: FDA-Public Use
  Company Number: NL-ROCHE-2140896

PATIENT
  Sex: Male

DRUGS (8)
  1. BUDESONIDE. [Suspect]
     Active Substance: BUDESONIDE
     Indication: ASTHMA
     Dosage: 4 DF, UNK (1 DF= 1 AMPOULE)
     Route: 065
  2. ALVESCO [Suspect]
     Active Substance: CICLESONIDE
     Indication: ASTHMA
     Route: 065
  3. ATIMOS [Suspect]
     Active Substance: FORMOTEROL
     Indication: ASTHMA
     Route: 065
  4. XOLAIR [Suspect]
     Active Substance: OMALIZUMAB
     Indication: ASTHMA
     Dosage: 5 DF, EVERY 4 WEEKS
     Route: 065
  5. PREDNISON [Suspect]
     Active Substance: PREDNISONE
     Indication: PRODUCT USED FOR UNKNOWN INDICATION
     Route: 065
  6. PREDNISON [Suspect]
     Active Substance: PREDNISONE
     Route: 065
  7. SERETIDE [Suspect]
     Active Substance: FLUTICASONE PROPIONATE\SALMETEROL XINAFOATE
     Indication: ASTHMA
     Dosage: UNK
     Route: 065
  8. COMBIVENT [Suspect]
     Active Substance: ALBUTEROL SULFATE\IPRATROPIUM BROMIDE
     Indication: ASTHMA
     Route: 065

REACTIONS (1)
  - Asthma [Not Recovered/Not Resolved]
